FAERS Safety Report 9166237 (Version 2)
Quarter: 2013Q1

REPORT INFORMATION
  Report Type: Spontaneous
  Country: FR (occurrence: None)
  Receive Date: 20130301
  Receipt Date: 20130318
  Transmission Date: 20140127
  Serious: Yes (Life-Threatening, Hospitalization)
  Sender: FDA-Public Use
  Company Number: 1616423

PATIENT
  Age: 14 Year
  Sex: Female

DRUGS (4)
  1. (VINCRISTINE SULFATE) [Suspect]
     Indication: EWING^S SARCOMA
     Route: 042
     Dates: start: 20121214, end: 20121216
  2. (ETOPOSIDE) [Suspect]
     Indication: EWING^S SARCOMA
     Route: 042
     Dates: start: 20121214, end: 20121216
  3. (DOXORUBICINE /00330902/) [Suspect]
     Indication: EWING^S SARCOMA
     Route: 042
     Dates: start: 20121214, end: 20121216
  4. (CYCLOPHOSPHAMIDE) [Suspect]
     Indication: EWING^S SARCOMA
     Route: 042
     Dates: start: 20121214, end: 20121216

REACTIONS (6)
  - Febrile bone marrow aplasia [None]
  - Disseminated intravascular coagulation [None]
  - Diarrhoea haemorrhagic [None]
  - Peritonitis [None]
  - Escherichia sepsis [None]
  - Genital haemorrhage [None]
